FAERS Safety Report 7865741-2 (Version None)
Quarter: 2011Q4

REPORT INFORMATION
  Report Type: 
  Country: None (occurrence: None)
  Receive Date: 20111028
  Receipt Date: 20110216
  Transmission Date: 20120403
  Serious: No
  Sender: FDA-Public Use
  Company Number: US-GLAXOSMITHKLINE-A0913975A

PATIENT
  Age: 55 Year
  Sex: Male

DRUGS (6)
  1. ATENOLOL [Concomitant]
  2. PROAIR HFA [Concomitant]
  3. ADVAIR DISKUS 100/50 [Suspect]
     Indication: CHRONIC OBSTRUCTIVE PULMONARY DISEASE
     Dosage: 1PUFF TWICE PER DAY
     Route: 055
     Dates: start: 20100929
  4. UNKNOWN DRUG [Concomitant]
  5. CLONIDINE [Concomitant]
  6. THEOPHYLLINE [Concomitant]

REACTIONS (1)
  - LACRIMATION INCREASED [None]
